FAERS Safety Report 6766280-2 (Version None)
Quarter: 2010Q2

REPORT INFORMATION
  Report Type: 
  Country: None (occurrence: None)
  Receive Date: 20100611
  Receipt Date: 20100531
  Transmission Date: 20101027
  Serious: Yes (Hospitalization)
  Sender: FDA-Public Use
  Company Number: IT-PFIZER INC-2010048806

PATIENT
  Age: 74 Year
  Sex: Male

DRUGS (12)
  1. ADRIBLASTINA [Suspect]
     Indication: B-CELL LYMPHOMA
     Dosage: 80 MG TOTAL
     Route: 042
     Dates: start: 20100122, end: 20100122
  2. VINCRISTINE [Suspect]
     Indication: B-CELL LYMPHOMA
     Dosage: 2 MG TOTAL
     Route: 042
     Dates: start: 20100122, end: 20100122
  3. MABTHERA [Suspect]
     Indication: B-CELL LYMPHOMA
     Dosage: 500 MG TOTAL
     Route: 042
     Dates: start: 20100128, end: 20100128
  4. CYCLOPHOSPHAMIDE [Suspect]
     Indication: B-CELL LYMPHOMA
     Dosage: 1300 MG TOTAL
     Route: 042
     Dates: start: 20100122, end: 20100122
  5. METHYLPREDNISOLONE SODIUM SUCCINATE [Suspect]
     Indication: B-CELL LYMPHOMA
     Dosage: 60 MG TOTAL
     Route: 042
     Dates: start: 20100122, end: 20100122
  6. PREDNISONE [Suspect]
     Indication: B-CELL LYMPHOMA
     Dosage: 100 MG TOTAL
     Route: 048
     Dates: start: 20100122, end: 20100122
  7. ALFUZOSIN HYDROCHLORIDE [Concomitant]
     Route: 048
  8. ALLOPURINOL [Concomitant]
     Dosage: 300 MG
     Route: 048
  9. FLUIMUCIL [Concomitant]
     Dosage: 600 MG
     Route: 048
  10. NEULASTA [Concomitant]
     Dosage: 6 MG
     Route: 058
     Dates: start: 20100123, end: 20100123
  11. ZOFRAN [Concomitant]
     Dosage: 8 MG
     Route: 042
     Dates: start: 20100122, end: 20100122
  12. ZEFFIX [Concomitant]
     Dosage: 100 MG
     Route: 048

REACTIONS (6)
  - ASTHENIA [None]
  - FLUID INTAKE REDUCED [None]
  - HYPERPYREXIA [None]
  - HYPOPHAGIA [None]
  - MUCOSAL INFLAMMATION [None]
  - RESPIRATORY FAILURE [None]
